FAERS Safety Report 4923180-8 (Version None)
Quarter: 2006Q1

REPORT INFORMATION
  Report Type: 
  Country: None (occurrence: None)
  Receive Date: 20060113
  Receipt Date: 20050121
  Transmission Date: 20060701
  Serious: Yes (Other)
  Sender: FDA-Public Use
  Company Number: HQWYE181616JUL04

PATIENT
  Age: 51 Year
  Sex: Female
  Weight: 58.57 kg

DRUGS (6)
  1. PREMPRO [Suspect]
     Indication: HOT FLUSH
     Dosage: ORAL
     Route: 048
     Dates: start: 19940101
  2. ESTRATAB [Suspect]
     Indication: HORMONE REPLACEMENT THERAPY
     Dosage: 0.625 MG, ORAL
     Route: 048
     Dates: start: 19940912
  3. PREMARIN [Suspect]
  4. PROVERA [Suspect]
     Indication: HORMONE REPLACEMENT THERAPY
     Dosage: 2.5 MG, ORAL
     Route: 048
     Dates: start: 19940912, end: 19960501
  5. LOTENSIN [Concomitant]
  6. PRAVACHOL [Concomitant]

REACTIONS (1)
  - BREAST CANCER [None]
